FAERS Safety Report 12499693 (Version 6)
Quarter: 2019Q1

REPORT INFORMATION
  Report Type: Spontaneous
  Country: JP (occurrence: JP)
  Receive Date: 20160627
  Receipt Date: 20190329
  Transmission Date: 20190417
  Serious: Yes (Death, Hospitalization)
  Sender: FDA-Public Use
  Company Number: JP-EISAI MEDICAL RESEARCH-EC-2016-018024

PATIENT
  Age: 73 Year
  Sex: Female
  Weight: 41.7 kg

DRUGS (5)
  1. LENVIMA [Suspect]
     Active Substance: LENVATINIB
     Route: 048
     Dates: start: 20151013, end: 20160620
  2. LENVIMA [Suspect]
     Active Substance: LENVATINIB
     Indication: NEOPLASM MALIGNANT
     Route: 048
     Dates: start: 20150526, end: 20150622
  3. LEVOTHYROXINE. [Concomitant]
     Active Substance: LEVOTHYROXINE
     Indication: THYROID DISORDER
     Dosage: UNKNOWN
  4. LENVIMA [Suspect]
     Active Substance: LENVATINIB
     Route: 048
     Dates: start: 20150629, end: 20151012
  5. HIRUDOID [Concomitant]
     Active Substance: GLYCOSAMINOGLYCANS
     Indication: PROPHYLAXIS
     Dosage: UNKNOWN

REACTIONS (6)
  - Malignant pleural effusion [Recovering/Resolving]
  - Thrombocytopenia [Unknown]
  - Decreased appetite [Not Recovered/Not Resolved]
  - Respiratory failure [Fatal]
  - Pneumonia aspiration [Recovering/Resolving]
  - Hypothyroidism [Unknown]

NARRATIVE: CASE EVENT DATE: 2015
